FAERS Safety Report 6876963-1 (Version None)
Quarter: 2010Q3

REPORT INFORMATION
  Report Type: 
  Country: None (occurrence: None)
  Receive Date: 20100727
  Receipt Date: 20100727
  Transmission Date: 20110219
  Serious: Yes (Hospitalization)
  Sender: FDA-Public Use
  Company Number: None

PATIENT
  Age: 54 Year
  Sex: Female
  Weight: 58.514 kg

DRUGS (8)
  1. XYREM [Suspect]
     Indication: CATAPLEXY
     Dosage: @ 10:00 PM PO @ 2:00 AM PO
     Route: 048
     Dates: start: 20100207, end: 20100413
  2. XYREM [Suspect]
     Indication: NARCOLEPSY
     Dosage: @ 10:00 PM PO @ 2:00 AM PO
     Route: 048
     Dates: start: 20100207, end: 20100413
  3. ZOLOFT [Concomitant]
  4. NEXIUM [Concomitant]
  5. SIMVASTATIN [Concomitant]
  6. REQUIP [Concomitant]
  7. DEXEDRINE [Concomitant]
  8. ADDERALL 10 [Concomitant]

REACTIONS (6)
  - AGGRESSION [None]
  - AGITATION [None]
  - AMNESIA [None]
  - CONFUSIONAL STATE [None]
  - PARANOIA [None]
  - PSYCHOTIC DISORDER [None]
